FAERS Safety Report 19035411 (Version 1)
Quarter: 2021Q1

REPORT INFORMATION
  Report Type: Report from Study
  Country: CA (occurrence: CA)
  Receive Date: 20210320
  Receipt Date: 20210320
  Transmission Date: 20210420
  Serious: Yes (Hospitalization, Other)
  Sender: FDA-Public Use
  Company Number: CA-SHIRE-CA202013180

PATIENT
  Age: 36 Year
  Sex: Male

DRUGS (11)
  1. TEDUGLUTIDE [Suspect]
     Active Substance: TEDUGLUTIDE
     Indication: SHORT-BOWEL SYNDROME
     Dosage: 3.89 MILLIGRAM, 1X/DAY:QD
     Route: 065
     Dates: start: 20190624
  2. TEDUGLUTIDE [Suspect]
     Active Substance: TEDUGLUTIDE
     Dosage: 3.89 MILLIGRAM, 1X/DAY:QD
     Route: 065
     Dates: start: 20190629
  3. TEDUGLUTIDE [Suspect]
     Active Substance: TEDUGLUTIDE
     Indication: SHORT-BOWEL SYNDROME
     Dosage: 3.89 MILLIGRAM, 1X/DAY:QD
     Route: 065
     Dates: start: 20190624
  4. TEDUGLUTIDE [Suspect]
     Active Substance: TEDUGLUTIDE
     Dosage: 3.89 MILLIGRAM, 1X/DAY:QD
     Route: 065
     Dates: start: 20190629
  5. TPN [AMINO ACIDS NOS;CARBOHYDRATES NOS;MINERALS NOS;VITAMINS NOS] [Concomitant]
     Active Substance: AMINO ACIDS\CARBOHYDRATES\MINERALS\VITAMINS
     Indication: PRODUCT USED FOR UNKNOWN INDICATION
     Dosage: UNK
     Route: 065
     Dates: start: 201608
  6. IMODIUM [Concomitant]
     Active Substance: LOPERAMIDE HYDROCHLORIDE
     Indication: PRODUCT USED FOR UNKNOWN INDICATION
     Dosage: UNK
     Route: 065
  7. TEDUGLUTIDE [Suspect]
     Active Substance: TEDUGLUTIDE
     Dosage: 3.89 MILLIGRAM, 1X/DAY:QD
     Route: 065
     Dates: start: 20190629
  8. LOMOTIL [LOPERAMIDE HYDROCHLORIDE] [Concomitant]
     Active Substance: LOPERAMIDE HYDROCHLORIDE
     Indication: PRODUCT USED FOR UNKNOWN INDICATION
     Dosage: 0.25 MILLIGRAM, 2 TABS EVERY 6 HOURS
     Route: 065
  9. TEDUGLUTIDE [Suspect]
     Active Substance: TEDUGLUTIDE
     Indication: SHORT-BOWEL SYNDROME
     Dosage: 3.89 MILLIGRAM, 1X/DAY:QD
     Route: 065
     Dates: start: 20190624
  10. TEDUGLUTIDE [Suspect]
     Active Substance: TEDUGLUTIDE
     Dosage: 3.89 MILLIGRAM, 1X/DAY:QD
     Route: 065
     Dates: start: 20190629
  11. TEDUGLUTIDE [Suspect]
     Active Substance: TEDUGLUTIDE
     Indication: SHORT-BOWEL SYNDROME
     Dosage: 3.89 MILLIGRAM, 1X/DAY:QD
     Route: 065
     Dates: start: 20190624

REACTIONS (14)
  - Cholecystitis acute [Unknown]
  - Abdominal pain [Recovered/Resolved]
  - Cholelithiasis [Unknown]
  - Bile duct stone [Unknown]
  - Acute kidney injury [Not Recovered/Not Resolved]
  - Procedural pain [Unknown]
  - Malaise [Recovering/Resolving]
  - Incision site abscess [Unknown]
  - Hospitalisation [Unknown]
  - Dehydration [Unknown]
  - Weight fluctuation [Unknown]
  - Blood creatinine abnormal [Unknown]
  - Fatigue [Unknown]
  - Inappropriate schedule of product administration [Unknown]

NARRATIVE: CASE EVENT DATE: 2020
